FAERS Safety Report 18129551 (Version 3)
Quarter: 2020Q3

REPORT INFORMATION
  Report Type: Report from Study
  Country: CA (occurrence: CA)
  Receive Date: 20200810
  Receipt Date: 20200903
  Transmission Date: 20201103
  Serious: Yes (Hospitalization)
  Sender: FDA-Public Use
  Company Number: CA-ROCHE-2653481

PATIENT
  Age: 52 Year
  Sex: Female
  Weight: 72.1 kg

DRUGS (20)
  1. RIVA?CAL D [Concomitant]
     Dates: start: 20200211
  2. TRASTUZUMAB. [Suspect]
     Active Substance: TRASTUZUMAB
     Indication: HER2 POSITIVE BREAST CANCER
     Dosage: ON 22/JUL/2020 MOST RECENT DOSE 402 MG OF TRASTUZUMAB PRIOR TO AE/SAE ONSET
     Route: 042
     Dates: start: 20200107
  3. DOXORUBICIN [Suspect]
     Active Substance: DOXORUBICIN
     Indication: HER2 POSITIVE BREAST CANCER
     Dosage: DATE OF MOST RECENT DOSE 104 MG OF DOXORUBICIN PRIOR TO AE/SAE ONSET 18/DEC/2019.
     Route: 042
     Dates: start: 20191106
  4. METONIA [Concomitant]
     Active Substance: METOCLOPRAMIDE
     Indication: NAUSEA
     Dates: start: 20191207
  5. CYCLOPHOSPHAMIDE. [Suspect]
     Active Substance: CYCLOPHOSPHAMIDE
     Indication: HER2 POSITIVE BREAST CANCER
     Dosage: DATE OF MOST RECENT DOSE 1036 MG OF CYCLOPHOSPHAMIDE PRIOR TO AE/SAE ONSET 18/DEC/2019.
     Route: 042
     Dates: start: 20191106
  6. TELMISARTAN. [Concomitant]
     Active Substance: TELMISARTAN
     Indication: MYOCARDITIS
     Dates: start: 20200214
  7. PANTOPRAZOLE [Concomitant]
     Active Substance: PANTOPRAZOLE
     Indication: GASTROOESOPHAGEAL REFLUX DISEASE
     Dates: start: 20200212
  8. PREDNISONE. [Concomitant]
     Active Substance: PREDNISONE
     Indication: PNEUMONITIS
     Route: 048
     Dates: start: 20200304
  9. TYLENOL [Concomitant]
     Active Substance: ACETAMINOPHEN
     Indication: APPENDICITIS
     Dates: start: 20200311
  10. PACLITAXEL. [Suspect]
     Active Substance: PACLITAXEL
     Indication: HER2 POSITIVE BREAST CANCER
     Dosage: DATE OF MOST RECENT DOSE 132 MG OF PACLITAXEL PRIOR TO AE/SAE ONSET 28/JAN/2020.
     Route: 042
     Dates: start: 20200107
  11. ATEZOLIZUMAB. [Suspect]
     Active Substance: ATEZOLIZUMAB
     Indication: HER2 POSITIVE BREAST CANCER
     Dosage: ON 28/JAN/2020 MOST RECENT DOSE OF ATEZOLIZUMAB PRIOR TO AE/SAE ONSET.
     Route: 042
     Dates: start: 20191106
  12. CIPROFLOXACIN. [Concomitant]
     Active Substance: CIPROFLOXACIN
     Indication: APPENDICITIS
     Dates: start: 20200313
  13. METRONIDAZOLE. [Concomitant]
     Active Substance: METRONIDAZOLE
     Indication: APPENDICITIS
     Dates: start: 20200313
  14. IMODIUM [Concomitant]
     Active Substance: LOPERAMIDE HYDROCHLORIDE
     Indication: DIARRHOEA
     Dates: start: 20200601
  15. PERTUZUMAB. [Suspect]
     Active Substance: PERTUZUMAB
     Indication: HER2 POSITIVE BREAST CANCER
     Dosage: ON 22/JUL/2020 MOST RECENT DOSE 420 MG OF PERTUZUMAB PRIOR TO AE/SAE ONSET.
     Route: 042
     Dates: start: 20200107
  16. SYNTHROID [Concomitant]
     Active Substance: LEVOTHYROXINE SODIUM
     Indication: HYPOTHYROIDISM
     Dates: start: 20200511
  17. TORADOL [Concomitant]
     Active Substance: KETOROLAC TROMETHAMINE
     Indication: RENAL COLIC
     Dates: start: 20200803, end: 20200805
  18. METOPROLOL. [Concomitant]
     Active Substance: METOPROLOL
     Dates: start: 20200609
  19. TYLENOL [Concomitant]
     Active Substance: ACETAMINOPHEN
     Indication: RENAL COLIC
     Dates: start: 20200802, end: 20200805
  20. DILAUDID [Concomitant]
     Active Substance: HYDROMORPHONE HYDROCHLORIDE
     Indication: RENAL COLIC
     Dates: start: 20200802, end: 20200805

REACTIONS (1)
  - Supraventricular tachycardia [Recovered/Resolved]

NARRATIVE: CASE EVENT DATE: 20200731
